FAERS Safety Report 19918483 (Version 2)
Quarter: 2021Q4

REPORT INFORMATION
  Report Type: Spontaneous
  Country: GB (occurrence: GB)
  Receive Date: 20211005
  Receipt Date: 20211204
  Transmission Date: 20220304
  Serious: Yes (Congenital Anomaly, Other)
  Sender: FDA-Public Use
  Company Number: GB-NOVARTISPH-NVSC2021GB222817

PATIENT
  Sex: Female
  Weight: 1.038 kg

DRUGS (4)
  1. CLINDAMYCIN [Suspect]
     Active Substance: CLINDAMYCIN
     Indication: Foetal exposure during pregnancy
     Dosage: MATERNAL DOSE: 150 MG, Q6H
     Route: 064
  2. ENOXAPARIN SODIUM [Suspect]
     Active Substance: ENOXAPARIN SODIUM
     Indication: Foetal exposure during pregnancy
     Dosage: MATERNAL DOSE: 60 MG, QD
     Route: 064
  3. ASPIRIN [Suspect]
     Active Substance: ASPIRIN
     Indication: Foetal exposure during pregnancy
     Dosage: MATERNAL DOSE: 75 MG
     Route: 064
  4. BETAMETHASONE [Suspect]
     Active Substance: BETAMETHASONE
     Indication: Foetal exposure during pregnancy
     Dosage: MATERNAL DOSE: 12 MG, Q24H (2 DOSES)
     Route: 064

REACTIONS (8)
  - Pulmonary hypoplasia [Unknown]
  - Sepsis [Unknown]
  - Foetal distress syndrome [Unknown]
  - Neonatal respiratory distress syndrome [Unknown]
  - Chronic respiratory disease [Unknown]
  - Gastrooesophageal reflux disease [Unknown]
  - Premature baby [Unknown]
  - Foetal exposure during pregnancy [Unknown]
